FAERS Safety Report 7471236-0 (Version None)
Quarter: 2011Q2

REPORT INFORMATION
  Report Type: 
  Country: None (occurrence: None)
  Receive Date: 20110510
  Receipt Date: 20110427
  Transmission Date: 20111010
  Serious: Yes (Hospitalization)
  Sender: FDA-Public Use
  Company Number: JP-CELGENEUS-TAJPN-11-0142

PATIENT
  Sex: Female
  Weight: 48 kg

DRUGS (4)
  1. NEUPOGEN [Concomitant]
     Route: 065
     Dates: start: 20101125
  2. ABRAXANE [Suspect]
     Indication: BREAST CANCER
     Dosage: 370 MILLIGRAM
     Route: 041
     Dates: start: 20101004, end: 20101004
  3. ABRAXANE [Suspect]
     Dosage: 370 MILLIGRAM
     Route: 041
     Dates: start: 20101025, end: 20101025
  4. AROMASIN [Concomitant]
     Indication: BREAST CANCER
     Dosage: 25 MILLIGRAM
     Route: 048
     Dates: start: 20100913, end: 20101004

REACTIONS (4)
  - ALANINE AMINOTRANSFERASE INCREASED [None]
  - BLOOD BILIRUBIN INCREASED [None]
  - WHITE BLOOD CELL COUNT DECREASED [None]
  - ASPARTATE AMINOTRANSFERASE INCREASED [None]
